FAERS Safety Report 11830300 (Version 3)
Quarter: 2015Q4

REPORT INFORMATION
  Report Type: Spontaneous
  Country: US (occurrence: US)
  Receive Date: 20151214
  Receipt Date: 20151214
  Transmission Date: 20160305
  Serious: No
  Sender: FDA-Public Use
  Company Number: US-JNJFOC-20151102220

PATIENT
  Sex: Female
  Weight: 53.52 kg

DRUGS (4)
  1. IMODIUM MULTI-SYMPTOM RELIEF [Suspect]
     Active Substance: DIMETHICONE\LOPERAMIDE HYDROCHLORIDE
     Indication: DIARRHOEA
     Dosage: 1 TIME
     Route: 048
     Dates: start: 20151028, end: 20151028
  2. IMODIUM MULTI-SYMPTOM RELIEF [Suspect]
     Active Substance: DIMETHICONE\LOPERAMIDE HYDROCHLORIDE
     Indication: ABDOMINAL DISCOMFORT
     Dosage: 1 TIME
     Route: 048
     Dates: start: 20151028, end: 20151028
  3. DICYCLOMINE HCL [Concomitant]
     Active Substance: DICYCLOMINE HYDROCHLORIDE
     Route: 065
  4. THYMIDINE [Concomitant]
     Active Substance: THYMIDINE
     Indication: THYROID DISORDER
     Route: 065

REACTIONS (1)
  - Expired product administered [Recovered/Resolved]
